FAERS Safety Report 9174767 (Version 1)
Quarter: 2013Q1

REPORT INFORMATION
  Report Type: Spontaneous
  Country: GR (occurrence: GR)
  Receive Date: 20130320
  Receipt Date: 20130320
  Transmission Date: 20140127
  Serious: Yes (Death, Other)
  Sender: FDA-Public Use
  Company Number: GR-PFIZER INC-2013088289

PATIENT
  Age: 61 Year
  Sex: Female

DRUGS (3)
  1. ZYVOXID [Suspect]
     Dosage: 600 MG, 2X/DAY
     Route: 042
     Dates: start: 20130118, end: 20130128
  2. MEROPENEM [Suspect]
     Dosage: 1 G, 3X/DAY
     Route: 042
     Dates: start: 20130115, end: 20130207
  3. CIPROFLOXACIN [Suspect]
     Dosage: 400 MG, 2X/DAY
     Route: 042
     Dates: start: 20130129, end: 20130207

REACTIONS (4)
  - Thrombocytopenia [Fatal]
  - Anaemia [Fatal]
  - Agranulocytosis [Unknown]
  - Generalised oedema [Recovered/Resolved]
